FAERS Safety Report 6764430-5 (Version None)
Quarter: 2010Q2

REPORT INFORMATION
  Report Type: 
  Country: None (occurrence: None)
  Receive Date: 20100610
  Receipt Date: 20100602
  Transmission Date: 20101027
  Serious: Yes (Other)
  Sender: FDA-Public Use
  Company Number: US-ROCHE-708178

PATIENT
  Sex: Female
  Weight: 63.5 kg

DRUGS (8)
  1. BONIVA [Suspect]
     Indication: OSTEOPENIA
     Route: 048
     Dates: start: 20090601
  2. HCTZ [Concomitant]
  3. METOPROLOL TARTRATE [Concomitant]
  4. ZOCOR [Concomitant]
  5. ASPIRIN [Concomitant]
  6. CALCIUM CARBONATE [Concomitant]
     Dosage: DRUG:CALCIUM 600 MG +D
  7. VITAMIN C [Concomitant]
  8. MULTI-VITAMIN [Concomitant]

REACTIONS (3)
  - IMPAIRED HEALING [None]
  - INFECTION [None]
  - TOOTH DISORDER [None]
